FAERS Safety Report 9093104 (Version 1)
Quarter: 2013Q1

REPORT INFORMATION
  Report Type: Spontaneous
  Country: SE (occurrence: SE)
  Receive Date: 20130201
  Receipt Date: 20130201
  Transmission Date: 20140127
  Serious: Yes (Life-Threatening)
  Sender: FDA-Public Use
  Company Number: SE-ASTRAZENECA-2013SE06546

PATIENT
  Sex: 0

DRUGS (1)
  1. BRILIQUE [Suspect]
     Indication: MYOCARDIAL INFARCTION
     Route: 048

REACTIONS (3)
  - Renal injury [Unknown]
  - Haemorrhage [Recovered/Resolved]
  - Medication error [Unknown]
